FAERS Safety Report 10560258 (Version 2)
Quarter: 2014Q4

REPORT INFORMATION
  Report Type: Spontaneous
  Country: CH (occurrence: None)
  Receive Date: 20141030
  Receipt Date: 20141110
  Transmission Date: 20150529
  Serious: Yes (Other)
  Sender: FDA-Public Use
  Company Number: 20140647

PATIENT
  Age: 38 Year
  Sex: Female
  Weight: 55 kg

DRUGS (2)
  1. FERINJECT [Suspect]
     Active Substance: FERRIC CARBOXYMALTOSE
     Indication: ANAEMIA OF PREGNANCY
     Route: 041
     Dates: start: 20130927, end: 20130927
  2. FERINJECT [Suspect]
     Active Substance: FERRIC CARBOXYMALTOSE
     Indication: IRON DEFICIENCY ANAEMIA
     Route: 041
     Dates: start: 20130927, end: 20130927

REACTIONS (7)
  - Syncope [None]
  - Flushing [None]
  - Erythema [None]
  - Blood pressure decreased [None]
  - Exposure during pregnancy [None]
  - Malaise [None]
  - Incorrect drug administration rate [None]

NARRATIVE: CASE EVENT DATE: 20130927
